FAERS Safety Report 8495461-5 (Version None)
Quarter: 2012Q3

REPORT INFORMATION
  Report Type: 
  Country: None (occurrence: None)
  Receive Date: 20120709
  Receipt Date: 20120705
  Transmission Date: 20120928
  Serious: Yes (Life-Threatening)
  Sender: FDA-Public Use
  Company Number: FR-ASTRAZENECA-2012SE45747

PATIENT
  Age: 15281 Day
  Sex: Male

DRUGS (7)
  1. MIDAZOLAM [Suspect]
     Indication: ANAESTHESIA
     Route: 042
     Dates: start: 20110905, end: 20110905
  2. DIPRIVAN [Suspect]
     Indication: ANAESTHESIA
     Route: 042
     Dates: start: 20110905, end: 20110905
  3. TRACRIUM [Suspect]
     Indication: ANAESTHESIA
     Route: 042
     Dates: start: 20110905, end: 20110905
  4. SUCCINYLCHOLINE CHLORIDE [Suspect]
     Indication: ANAESTHESIA
     Route: 042
     Dates: start: 20110905, end: 20110905
  5. SUFENTANIL CITRATE [Suspect]
     Indication: ANAESTHESIA
     Route: 042
     Dates: start: 20110905, end: 20110905
  6. LIDOCAINE [Suspect]
     Indication: ANAESTHESIA
     Route: 042
     Dates: start: 20110905, end: 20110905
  7. ETOMIDATE [Suspect]
     Indication: ANAESTHESIA
     Route: 042
     Dates: start: 20110905, end: 20110905

REACTIONS (3)
  - BRONCHOSPASM [None]
  - HYPERHIDROSIS [None]
  - HYPOTENSION [None]
